FAERS Safety Report 4937418-4 (Version None)
Quarter: 2006Q1

REPORT INFORMATION
  Report Type: 
  Country: None (occurrence: None)
  Receive Date: 20060302
  Receipt Date: 20060214
  Transmission Date: 20060701
  Serious: Yes (Hospitalization)
  Sender: FDA-Public Use
  Company Number: CA200602002988

PATIENT
  Age: 35 Year
  Sex: Male

DRUGS (2)
  1. ZYPREXA [Suspect]
     Dosage: 200 MG, ORAL
     Route: 048
  2. VANEX-LA (GUAIFENESIN, PHENYLPROPANOLAMINE HYDROCHLORIDE) [Concomitant]

REACTIONS (4)
  - DELIRIUM [None]
  - DISORIENTATION [None]
  - OVERDOSE [None]
  - RESTLESSNESS [None]
